FAERS Safety Report 7531703-8 (Version None)
Quarter: 2011Q2

REPORT INFORMATION
  Report Type: 
  Country: None (occurrence: None)
  Receive Date: 20110601
  Receipt Date: 20110520
  Transmission Date: 20111010
  Serious: Yes (Other)
  Sender: FDA-Public Use
  Company Number: 2011BN000045

PATIENT
  Age: 48 Year
  Sex: Female

DRUGS (2)
  1. FILGRASTIM [Concomitant]
  2. MELPHALAN HYDROCHLORIDE [Suspect]
     Indication: LIGHT CHAIN DISEASE
     Dosage: 140 MG/M**2;

REACTIONS (5)
  - BACTERAEMIA [None]
  - RENAL FAILURE ACUTE [None]
  - DIALYSIS [None]
  - PNEUMONIA [None]
  - STEM CELL TRANSPLANT [None]
